FAERS Safety Report 13381390 (Version 1)
Quarter: 2017Q1

REPORT INFORMATION
  Report Type: Report from Study
  Country: US (occurrence: US)
  Receive Date: 20170329
  Receipt Date: 20170329
  Transmission Date: 20170429
  Serious: No
  Sender: FDA-Public Use
  Company Number: US-009507513-1703USA008703

PATIENT
  Sex: Female

DRUGS (1)
  1. NEXPLANON [Suspect]
     Active Substance: ETONOGESTREL
     Dosage: IMPLANT, UNK
     Route: 059

REACTIONS (4)
  - Abnormal behaviour [Recovered/Resolved]
  - Affect lability [Recovered/Resolved]
  - Adverse event [Recovered/Resolved]
  - Feeling abnormal [Recovered/Resolved]
